FAERS Safety Report 25196437 (Version 1)
Quarter: 2025Q2

REPORT INFORMATION
  Report Type: Spontaneous
  Country: US (occurrence: US)
  Receive Date: 20250415
  Receipt Date: 20250415
  Transmission Date: 20250716
  Serious: No
  Sender: MERCK SHARP AND DOHME
  Company Number: US-009507513-2271412

PATIENT
  Age: 16 Year
  Sex: Female
  Weight: 37.195 kg

DRUGS (13)
  1. WINREVAIR [Suspect]
     Active Substance: SOTATERCEPT-CSRK
     Indication: Pulmonary arterial hypertension
     Route: 058
     Dates: start: 202405
  2. WINREVAIR [Suspect]
     Active Substance: SOTATERCEPT-CSRK
  3. WINREVAIR [Suspect]
     Active Substance: SOTATERCEPT-CSRK
  4. WINREVAIR [Suspect]
     Active Substance: SOTATERCEPT-CSRK
  5. REMODULIN [Concomitant]
     Active Substance: TREPROSTINIL
  6. TRACLEER [Concomitant]
     Active Substance: BOSENTAN
  7. TADALAFIL [Concomitant]
     Active Substance: TADALAFIL
  8. NADOLOL [Concomitant]
     Active Substance: NADOLOL
  9. PRILOSEC [Concomitant]
     Active Substance: OMEPRAZOLE MAGNESIUM
  10. FUROSEMIDE [Concomitant]
     Active Substance: FUROSEMIDE
  11. IRON [Concomitant]
     Active Substance: IRON
  12. ASPIRIN [Concomitant]
     Active Substance: ASPIRIN
  13. GABAPENTIN [Concomitant]
     Active Substance: GABAPENTIN

REACTIONS (6)
  - Product prescribing issue [Unknown]
  - Syringe issue [Unknown]
  - No adverse event [Unknown]
  - Exposure via skin contact [Recovered/Resolved]
  - Device connection issue [Unknown]
  - Product administered to patient of inappropriate age [Unknown]

NARRATIVE: CASE EVENT DATE: 20250330
